FAERS Safety Report 5655440-X (Version None)
Quarter: 2008Q1

REPORT INFORMATION
  Report Type: 
  Country: None (occurrence: None)
  Receive Date: 20080307
  Receipt Date: 20080228
  Transmission Date: 20080703
  Serious: Yes (Death, Hospitalization, Other)
  Sender: FDA-Public Use
  Company Number: ES-ROCHE-550234

PATIENT
  Age: 68 Year
  Sex: Male

DRUGS (11)
  1. TORSEMIDE [Suspect]
     Indication: DRUG USE FOR UNKNOWN INDICATION
     Route: 065
  2. METFORMIN HCL [Suspect]
     Indication: TYPE 2 DIABETES MELLITUS
     Route: 065
  3. METFORMIN HCL [Suspect]
     Route: 065
  4. NITROGLYCERIN [Suspect]
     Indication: DRUG USE FOR UNKNOWN INDICATION
     Route: 065
  5. GLIBENCLAMIDE [Suspect]
     Indication: DRUG USE FOR UNKNOWN INDICATION
     Route: 065
  6. DILTIAZEM [Concomitant]
  7. ASPIRIN [Concomitant]
  8. ENOXAPARIN [Concomitant]
  9. TRIMETAZIDINE [Concomitant]
  10. CLOPIDOGREL [Concomitant]
  11. RAMIPRIL [Concomitant]

REACTIONS (6)
  - ACUTE MYOCARDIAL INFARCTION [None]
  - CARDIAC ARREST [None]
  - DRUG TOXICITY [None]
  - METABOLIC ACIDOSIS [None]
  - RENAL FAILURE ACUTE [None]
  - VENTRICULAR ASYSTOLE [None]
